FAERS Safety Report 4707940-4 (Version None)
Quarter: 2005Q3

REPORT INFORMATION
  Report Type: 
  Country: None (occurrence: None)
  Receive Date: 20050705
  Receipt Date: 20050705
  Transmission Date: 20060218
  Serious: Yes (Other)
  Sender: FDA-Public Use
  Company Number: None

PATIENT
  Sex: Female
  Weight: 56.6996 kg

DRUGS (1)
  1. LEVAQUIN [Suspect]
     Indication: PNEUMONIA
     Dosage: ONE   TABLET   ORAL
     Route: 048
     Dates: start: 20050512, end: 20050513

REACTIONS (3)
  - MALAISE [None]
  - REFUSAL OF TREATMENT BY PATIENT [None]
  - VOMITING [None]
